FAERS Safety Report 8016286-0 (Version None)
Quarter: 2011Q4

REPORT INFORMATION
  Report Type: 
  Country: None (occurrence: None)
  Receive Date: 20111230
  Receipt Date: 20111227
  Transmission Date: 20120403
  Serious: Yes (Hospitalization)
  Sender: FDA-Public Use
  Company Number: US-MERCK-1110USA00454

PATIENT
  Age: 70 Year
  Sex: Female

DRUGS (2)
  1. FOSAMAX [Suspect]
     Indication: OSTEOPOROSIS
     Route: 048
     Dates: start: 20040405, end: 20080512
  2. FOSAMAX [Suspect]
     Route: 048
     Dates: start: 20080828

REACTIONS (7)
  - FALL [None]
  - ARTHRITIS [None]
  - UPPER LIMB FRACTURE [None]
  - OVERDOSE [None]
  - BONE DISORDER [None]
  - FEMUR FRACTURE [None]
  - LOWER LIMB FRACTURE [None]
